FAERS Safety Report 16232977 (Version 1)
Quarter: 2019Q2

REPORT INFORMATION
  Report Type: Spontaneous
  Country: US (occurrence: US)
  Receive Date: 20190319
  Receipt Date: 20190319
  Transmission Date: 20190711
  Serious: No
  Sender: FDA-Public Use
  Company Number: None

PATIENT
  Age: 31 Year
  Sex: Female
  Weight: 67.59 kg

DRUGS (1)
  1. BUPRENORPHINE NALOXONE [Suspect]
     Active Substance: BUPRENORPHINE\NALOXONE
     Indication: DRUG USE DISORDER
     Dosage: ?          OTHER FREQUENCY:2 TIMES DAILY;?
     Route: 048
     Dates: start: 20171218, end: 20190305

REACTIONS (4)
  - Drug ineffective [None]
  - Hot flush [None]
  - Product solubility abnormal [None]
  - Nausea [None]

NARRATIVE: CASE EVENT DATE: 20190305
